FAERS Safety Report 9287736 (Version 1)
Quarter: 2012Q4

REPORT INFORMATION
  Report Type: Spontaneous
  Country: US (occurrence: None)
  Receive Date: 20120917
  Receipt Date: 20120917
  Transmission Date: 20130627
  Serious: Yes (Death)
  Sender: FDA-Public Use
  Company Number: US-BANPHARM-20120120

PATIENT
  Age: 31 Year
  Sex: Male
  Weight: 132 kg

DRUGS (1)
  1. NAPROXEN SODIUM [Suspect]
     Indication: IMPACTED WISDOM TOOTH
     Route: 048
     Dates: start: 20120212

REACTIONS (26)
  - Coma [None]
  - Drug ineffective [None]
  - Loss of consciousness [None]
  - Fall [None]
  - Accidental death [None]
  - Hypoxic-ischaemic encephalopathy [None]
  - Anaphylactic reaction [None]
  - Respiratory tract oedema [None]
  - Tongue oedema [None]
  - Epiglottic oedema [None]
  - Cardiomegaly [None]
  - Dilatation ventricular [None]
  - Ventricular hypertrophy [None]
  - Pulmonary oedema [None]
  - Angiopathy [None]
  - Granuloma [None]
  - Hepatosplenomegaly [None]
  - Liver disorder [None]
  - Gallbladder cholesterolosis [None]
  - Hepatitis [None]
  - Inflammation [None]
  - Rib fracture [None]
  - Sternal fracture [None]
  - Procedural complication [None]
  - Endotracheal intubation complication [None]
  - Product substitution issue [None]
